FAERS Safety Report 7590907-9 (Version None)
Quarter: 2011Q3

REPORT INFORMATION
  Report Type: 
  Country: None (occurrence: None)
  Receive Date: 20110705
  Receipt Date: 20110624
  Transmission Date: 20111222
  Serious: Yes (Hospitalization, Other)
  Sender: FDA-Public Use
  Company Number: PHHY2010JP05616

PATIENT
  Sex: Female
  Weight: 30 kg

DRUGS (7)
  1. RHEUMATREX [Concomitant]
     Dosage: 4 MG,
     Route: 048
     Dates: start: 20020101, end: 20100127
  2. MYONAL [Concomitant]
     Dosage: 50 MG,
     Route: 048
     Dates: start: 20020101, end: 20100127
  3. SOLON [Concomitant]
     Dosage: 100 MG,
     Route: 048
     Dates: start: 20020101, end: 20100127
  4. PREDNISOLONE [Suspect]
     Dosage: 2.5 MG,
     Route: 048
     Dates: start: 20020101, end: 20100127
  5. RHEUMATREX [Concomitant]
     Dosage: 8 MG,
     Route: 048
  6. NEORAL [Suspect]
     Indication: RHEUMATOID ARTHRITIS
     Dosage: 50 MG, BID
     Route: 048
     Dates: start: 20020101, end: 20100127
  7. LANSOPRAZOLE [Concomitant]
     Dosage: 15 MG,
     Route: 048
     Dates: start: 20020101, end: 20100127

REACTIONS (8)
  - URINARY RETENTION [None]
  - NEUROGENIC BLADDER [None]
  - EXTRANODAL MARGINAL ZONE B-CELL LYMPHOMA (MALT TYPE) [None]
  - CYSTITIS NONINFECTIVE [None]
  - MUCOSAL DISCOLOURATION [None]
  - OEDEMA [None]
  - POLLAKIURIA [None]
  - HAEMATURIA [None]
